FAERS Safety Report 6700743-0 (Version None)
Quarter: 2010Q2

REPORT INFORMATION
  Report Type: 
  Country: None (occurrence: None)
  Receive Date: 20100428
  Receipt Date: 20100422
  Transmission Date: 20101027
  Serious: Yes (Death, Life-Threatening, Hospitalization)
  Sender: FDA-Public Use
  Company Number: JP-BRISTOL-MYERS SQUIBB COMPANY-14425128

PATIENT
  Age: 60 Year
  Sex: Female
  Weight: 49 kg

DRUGS (10)
  1. ERBITUX [Suspect]
     Indication: COLON CANCER
     Dosage: 400MG/M2 FROM 6-06NOV08, 250MG/M2 FROM 13NOV08-20NOV08.
     Route: 041
     Dates: start: 20081106, end: 20081106
  2. IRINOTECAN HYDROCHLORIDE [Suspect]
     Indication: COLON CANCER
     Dosage: IN 20NOV08, AT 3RD INF DOSE REDUCED TO 75% WITH 150MG/BODY WAS GIVEN
     Route: 042
     Dates: start: 20081106, end: 20081120
  3. RADIATION THERAPY [Concomitant]
     Indication: COLORECTAL CANCER
  4. CHLOR-TRIMETON [Concomitant]
     Indication: PREMEDICATION
     Dosage: FORM = INJ
     Route: 041
     Dates: start: 20081106, end: 20081120
  5. DEXART [Concomitant]
     Indication: PREMEDICATION
     Dosage: FORM = INJ
     Route: 041
     Dates: start: 20081106, end: 20081120
  6. KYTRIL [Concomitant]
     Indication: ANTIEMETIC SUPPORTIVE CARE
     Dosage: FORM = INJ
     Route: 041
     Dates: start: 20081106, end: 20081120
  7. AMARYL [Concomitant]
     Indication: DIABETES MELLITUS
     Dosage: TABS
     Route: 048
     Dates: start: 20081106, end: 20081123
  8. MEVALOTIN [Concomitant]
     Indication: HYPERLIPIDAEMIA
     Route: 048
     Dates: start: 20081106, end: 20081123
  9. AMLODIN [Concomitant]
     Indication: HYPERTENSION
     Route: 048
     Dates: start: 20081106, end: 20081123
  10. GAMOFA [Concomitant]
     Indication: GASTRITIS
     Route: 048
     Dates: start: 20081106, end: 20081124

REACTIONS (5)
  - DIARRHOEA [None]
  - PLATELET COUNT DECREASED [None]
  - SEPSIS [None]
  - STOMATITIS [None]
  - WHITE BLOOD CELL COUNT DECREASED [None]
